FAERS Safety Report 12550764 (Version 1)
Quarter: 2016Q3

REPORT INFORMATION
  Report Type: Report from Study
  Country: CO (occurrence: CO)
  Receive Date: 20160712
  Receipt Date: 20160712
  Transmission Date: 20161109
  Serious: Yes (Death)
  Sender: FDA-Public Use
  Company Number: CO-ABBVIE-16P-036-1674639-00

PATIENT
  Age: 23 Year
  Sex: Male

DRUGS (1)
  1. ZEMPLAR [Suspect]
     Active Substance: PARICALCITOL
     Indication: HYPERPARATHYROIDISM SECONDARY
     Route: 042
     Dates: start: 20150818, end: 20160307

REACTIONS (3)
  - Asthenia [Fatal]
  - Cardio-respiratory arrest [Fatal]
  - Tachyarrhythmia [Fatal]

NARRATIVE: CASE EVENT DATE: 20160705
